FAERS Safety Report 15533713 (Version 1)
Quarter: 2018Q4

REPORT INFORMATION
  Report Type: Spontaneous
  Country: TR (occurrence: TR)
  Receive Date: 20181019
  Receipt Date: 20181019
  Transmission Date: 20190205
  Serious: Yes (Death, Hospitalization)
  Sender: FDA-Public Use
  Company Number: TR-BAYER-2018-192935

PATIENT
  Sex: Female

DRUGS (2)
  1. CORASPIN 100 MG [Suspect]
     Active Substance: ASPIRIN
     Dosage: UNK
  2. BEKUNIS [BISACODYL\SENNOSIDES A AND B] [Suspect]
     Active Substance: BISACODYL\SENNOSIDES A AND B
     Indication: DEFAECATION URGENCY
     Dosage: UNK

REACTIONS (2)
  - Death [Fatal]
  - Cerebrovascular accident [None]

NARRATIVE: CASE EVENT DATE: 201707
